FAERS Safety Report 6634707-2 (Version None)
Quarter: 2010Q1

REPORT INFORMATION
  Report Type: 
  Country: None (occurrence: None)
  Receive Date: 20100311
  Receipt Date: 20100311
  Transmission Date: 20100710
  Serious: Yes (Life-Threatening)
  Sender: FDA-Public Use
  Company Number: None

PATIENT
  Age: 47 Year
  Sex: Female
  Weight: 63.5036 kg

DRUGS (2)
  1. SERTRALINE HCL [Suspect]
     Indication: ANXIETY
     Dosage: 150 MG. 1X A DAY ORALLY
     Route: 048
     Dates: start: 20091101, end: 20091201
  2. SERTRALINE HCL [Suspect]
     Indication: DEPRESSION
     Dosage: 150 MG. 1X A DAY ORALLY
     Route: 048
     Dates: start: 20091101, end: 20091201

REACTIONS (3)
  - GENERAL PHYSICAL CONDITION ABNORMAL [None]
  - GENERAL SYMPTOM [None]
  - PRODUCT SUBSTITUTION ISSUE [None]
